FAERS Safety Report 18674883 (Version 1)
Quarter: 2020Q4

REPORT INFORMATION
  Report Type: Spontaneous
  Country: US (occurrence: US)
  Receive Date: 20201228
  Receipt Date: 20201228
  Transmission Date: 20210114
  Serious: No
  Sender: FDA-Public Use
  Company Number: None

PATIENT
  Age: 53 Year
  Sex: Female
  Weight: 65.25 kg

DRUGS (5)
  1. ALBUTEROL. [Concomitant]
     Active Substance: ALBUTEROL
  2. XARELTO [Suspect]
     Active Substance: RIVAROXABAN
     Indication: POSTOPERATIVE CARE
     Dosage: ?          QUANTITY:1 TABLET(S);?
     Route: 048
  3. PERCOCET [Concomitant]
     Active Substance: ACETAMINOPHEN\OXYCODONE HYDROCHLORIDE
  4. MELATONIN [Concomitant]
     Active Substance: MELATONIN
  5. VITAMIN D [Concomitant]
     Active Substance: VITAMIN D NOS

REACTIONS (1)
  - Menorrhagia [None]

NARRATIVE: CASE EVENT DATE: 20201222
